FAERS Safety Report 6065753-8 (Version None)
Quarter: 2009Q1

REPORT INFORMATION
  Report Type: 
  Country: None (occurrence: None)
  Receive Date: 20090202
  Receipt Date: 20090123
  Transmission Date: 20090719
  Serious: No
  Sender: FDA-Public Use
  Company Number: US025352

PATIENT
  Sex: Female

DRUGS (3)
  1. FENTORA [Suspect]
     Indication: BACK PAIN
     Dosage: BUCCAL
     Route: 002
  2. FENTORA [Suspect]
     Indication: NEURALGIA
     Dosage: BUCCAL
     Route: 002
  3. MORPHINE [Concomitant]

REACTIONS (1)
  - DRUG PRESCRIBING ERROR [None]
